FAERS Safety Report 8607024 (Version 3)
Quarter: 2014Q1

REPORT INFORMATION
  Report Type: Spontaneous
  Country: US (occurrence: US)
  Receive Date: 20120611
  Receipt Date: 20140129
  Transmission Date: 20141002
  Serious: Yes (Hospitalization)
  Sender: FDA-Public Use
  Company Number: US-ASTRAZENECA-2012SE35401

PATIENT
  Age: 45 Year
  Sex: Female
  Weight: 74.8 kg

DRUGS (14)
  1. NEXIUM [Suspect]
     Route: 048
     Dates: start: 1997, end: 2008
  2. PRILOSEC [Suspect]
     Route: 048
     Dates: start: 1997, end: 2008
  3. PRILOSEC [Suspect]
     Route: 048
     Dates: start: 1998, end: 2006
  4. PRILOSEC [Suspect]
     Route: 048
     Dates: start: 1998, end: 2008
  5. PRILOSEC [Suspect]
     Route: 048
     Dates: start: 20000514
  6. ZEGERID [Concomitant]
     Dates: start: 1997, end: 2008
  7. ZEGERID [Concomitant]
     Dates: start: 2006, end: 2008
  8. PREVACID [Concomitant]
     Dates: start: 1997, end: 2008
  9. PROPULSID [Concomitant]
     Dates: start: 1997, end: 2008
  10. CIMETIDINE [Concomitant]
     Dates: start: 19970903
  11. PROMETHAZINE [Concomitant]
     Dates: start: 20080108
  12. HYDROCODONE/APAP [Concomitant]
     Dosage: 7.5/750
  13. PREMPHASE [Concomitant]
     Dosage: 0.625/5 MG
     Dates: start: 20030918
  14. METHYLPREDNISOLONE [Concomitant]

REACTIONS (20)
  - Arthropathy [Unknown]
  - Arthropathy [Unknown]
  - Fibrocystic breast disease [Unknown]
  - Osteoporosis [Unknown]
  - Multiple fractures [Unknown]
  - Memory impairment [Unknown]
  - Contusion [Unknown]
  - Skin disorder [Unknown]
  - Skin haemorrhage [Unknown]
  - Foot fracture [Unknown]
  - Calcium deficiency [Unknown]
  - Chronic obstructive pulmonary disease [Unknown]
  - Rheumatoid arthritis [Unknown]
  - Joint injury [Unknown]
  - Migraine [Unknown]
  - Intervertebral disc degeneration [Unknown]
  - Spinal osteoarthritis [Unknown]
  - Nausea [Unknown]
  - Dizziness [Unknown]
  - Vomiting [Unknown]
